FAERS Safety Report 17828042 (Version 1)
Quarter: 2020Q2

REPORT INFORMATION
  Report Type: Spontaneous
  Country: US (occurrence: US)
  Receive Date: 20200527
  Receipt Date: 20200527
  Transmission Date: 20200714
  Serious: No
  Sender: FDA-Public Use
  Company Number: US-MYLANLABS-2020M1050300

PATIENT
  Age: 80 Year
  Sex: Male

DRUGS (1)
  1. SCOPOLAMINE TRANSDERMAL SYSTEM [Suspect]
     Active Substance: SCOPOLAMINE
     Indication: SALIVARY HYPERSECRETION
     Dosage: 1 PATCH EVERY 3 DAYS^
     Route: 062

REACTIONS (4)
  - Off label use [Not Recovered/Not Resolved]
  - Therapeutic product effect increased [Unknown]
  - Product use issue [Unknown]
  - Aptyalism [Not Recovered/Not Resolved]

NARRATIVE: CASE EVENT DATE: 20200517
